FAERS Safety Report 17877189 (Version 6)
Quarter: 2021Q2

REPORT INFORMATION
  Report Type: Report from Study
  Country: IT (occurrence: IT)
  Receive Date: 20200609
  Receipt Date: 20210520
  Transmission Date: 20210717
  Serious: Yes (Death, Life-Threatening, Hospitalization, Other)
  Sender: FDA-Public Use
  Company Number: IT-GLAXOSMITHKLINE-IT2020GSK090750

PATIENT
  Age: 57 Year
  Sex: Female
  Weight: 86 kg

DRUGS (2)
  1. NIRAPARIB [Suspect]
     Active Substance: NIRAPARIB
     Dosage: 100 MG
     Route: 048
     Dates: start: 20200409, end: 20200409
  2. NIRAPARIB [Suspect]
     Active Substance: NIRAPARIB
     Indication: OVARIAN CANCER
     Dosage: 300 MG
     Route: 048
     Dates: start: 20181206

REACTIONS (1)
  - Acute myeloid leukaemia [Fatal]

NARRATIVE: CASE EVENT DATE: 20200519
